FAERS Safety Report 5004428-0 (Version None)
Quarter: 2006Q2

REPORT INFORMATION
  Report Type: 
  Country: None (occurrence: None)
  Receive Date: 20060511
  Receipt Date: 20060502
  Transmission Date: 20061013
  Serious: Yes (Death)
  Sender: FDA-Public Use
  Company Number: 163-21880-06040165

PATIENT
  Age: 80 Year
  Sex: Male

DRUGS (5)
  1. REVLIMID [Suspect]
     Indication: MYELODYSPLASTIC SYNDROME
     Dosage: 10 MG, EOD, ORAL
     Route: 048
     Dates: start: 20060210, end: 20060324
  2. ARANESP [Concomitant]
  3. MEGACE [Concomitant]
  4. TUSSINEX [Concomitant]
  5. AMBIEN [Concomitant]

REACTIONS (3)
  - CHILLS [None]
  - COUGH [None]
  - DISEASE PROGRESSION [None]
